FAERS Safety Report 20615725 (Version 1)
Quarter: 2022Q1

REPORT INFORMATION
  Report Type: Spontaneous
  Country: US (occurrence: None)
  Receive Date: 20220318
  Receipt Date: 20220318
  Transmission Date: 20220424
  Serious: No
  Sender: FDA-Public Use
  Company Number: None

PATIENT
  Age: 64 Year
  Sex: Female

DRUGS (1)
  1. AUBAGIO [Suspect]
     Active Substance: TERIFLUNOMIDE
     Indication: Multiple sclerosis
     Dosage: FREQUENCY : DAILY?
     Route: 048
     Dates: start: 202202

REACTIONS (3)
  - Lymphadenopathy [None]
  - Body temperature increased [None]
  - Impaired work ability [None]

NARRATIVE: CASE EVENT DATE: 20220216
